FAERS Safety Report 9984810 (Version 1)
Quarter: 2014Q1

REPORT INFORMATION
  Report Type: Report from Study
  Country: US (occurrence: US)
  Receive Date: 20140307
  Receipt Date: 20140307
  Transmission Date: 20141002
  Serious: No
  Sender: FDA-Public Use
  Company Number: US-ABBVIE-14P-163-1186055-00

PATIENT
  Age: 17 Year
  Sex: Male

DRUGS (5)
  1. HUMIRA [Suspect]
     Indication: ANKYLOSING SPONDYLITIS
     Dates: start: 201109
  2. MOBIC [Concomitant]
     Indication: PRODUCT USED FOR UNKNOWN INDICATION
     Dates: end: 201310
  3. SULFASALAZIN [Concomitant]
     Indication: COLITIS ULCERATIVE
     Dosage: 3 TABS BID
  4. LORYNA [Concomitant]
     Indication: CONTRACEPTION
  5. FLUOXETIN [Concomitant]
     Indication: DEPRESSION

REACTIONS (5)
  - Inappropriate schedule of drug administration [Unknown]
  - Back pain [Recovered/Resolved]
  - Arthralgia [Recovered/Resolved]
  - Abdominal pain upper [Recovered/Resolved]
  - Folliculitis [Not Recovered/Not Resolved]
